FAERS Safety Report 7903337-4 (Version None)
Quarter: 2011Q4

REPORT INFORMATION
  Report Type: 
  Country: None (occurrence: None)
  Receive Date: 20111109
  Receipt Date: 20111108
  Transmission Date: 20120403
  Serious: No
  Sender: FDA-Public Use
  Company Number: US-PFIZER INC-2011256130

PATIENT
  Sex: Male
  Weight: 78.458 kg

DRUGS (9)
  1. AMITRIPTYLINE [Concomitant]
     Dosage: UNK
  2. PAROXETINE [Concomitant]
     Dosage: UNK
  3. POLYETHYLENE GLYCOL [Concomitant]
     Dosage: UNK
  4. LYRICA [Suspect]
     Dosage: 50 MG, 3X/DAY
     Route: 048
     Dates: start: 20111017
  5. FEXOFENADINE [Concomitant]
     Dosage: UNK
  6. ALENDRONATE SODIUM [Concomitant]
     Dosage: UNK
  7. LYRICA [Suspect]
     Indication: NEUROPATHY PERIPHERAL
     Dosage: 50 MG, 3X/DAY
     Route: 048
     Dates: start: 20111017
  8. LOVASTATIN [Concomitant]
     Dosage: UNK
  9. KETOCONAZOLE [Concomitant]
     Dosage: UNK

REACTIONS (7)
  - SOMNAMBULISM [None]
  - SENSATION OF HEAVINESS [None]
  - CONSTIPATION [None]
  - OEDEMA PERIPHERAL [None]
  - POLLAKIURIA [None]
  - NEUROPATHY PERIPHERAL [None]
  - PARAESTHESIA OF GENITAL MALE [None]
